FAERS Safety Report 16306777 (Version 2)
Quarter: 2020Q2

REPORT INFORMATION
  Report Type: Spontaneous
  Country: US (occurrence: US)
  Receive Date: 20190513
  Receipt Date: 20200407
  Transmission Date: 20200713
  Serious: Yes (Hospitalization, Other)
  Sender: FDA-Public Use
  Company Number: US-ASTRAZENECA-2019SE64102

PATIENT
  Age: 26535 Day
  Sex: Female
  Weight: 93 kg

DRUGS (54)
  1. VITAMIN C [Concomitant]
     Active Substance: ASCORBIC ACID
     Indication: SUPPLEMENTATION THERAPY
     Dates: start: 20170417, end: 20190806
  2. CARVEDILOL. [Concomitant]
     Active Substance: CARVEDILOL
     Dates: start: 20171211
  3. DOXYCYC MONO [Concomitant]
     Active Substance: DOXYCYCLINE
     Dates: start: 20171211
  4. PRAMIPEXOLE. [Concomitant]
     Active Substance: PRAMIPEXOLE
     Dates: start: 20181120
  5. CYCLOPHOSPHAMIDE. [Concomitant]
     Active Substance: CYCLOPHOSPHAMIDE
     Dates: start: 20121003
  6. SULFA/TRIMETH [Concomitant]
     Dates: start: 20121112
  7. LOSARTAN. [Concomitant]
     Active Substance: LOSARTAN
     Indication: HYPERTENSION
     Dates: start: 20130104, end: 20190603
  8. LEVOTHYROXINE. [Concomitant]
     Active Substance: LEVOTHYROXINE
     Indication: HYPOTHYROIDISM
     Dates: start: 20161003, end: 20190603
  9. ATORVASTATIN [Concomitant]
     Active Substance: ATORVASTATIN
     Dates: start: 20150916, end: 20190603
  10. GENTAMICIN. [Concomitant]
     Active Substance: GENTAMICIN
     Dates: start: 20180314
  11. AVAPRO [Concomitant]
     Active Substance: IRBESARTAN
     Dates: start: 20120306
  12. PANTOPRAZOLE [Suspect]
     Active Substance: PANTOPRAZOLE
     Indication: GASTROOESOPHAGEAL REFLUX DISEASE
     Dosage: GENERIC
     Route: 065
     Dates: start: 20110714, end: 20111003
  13. TORSEMIDE. [Concomitant]
     Active Substance: TORSEMIDE
     Indication: FLUID RETENTION
     Dates: start: 20121016, end: 20140312
  14. TYLENOL [Concomitant]
     Active Substance: ACETAMINOPHEN
     Indication: PAIN
     Dates: start: 2005
  15. PEPCID AC [Concomitant]
     Active Substance: FAMOTIDINE
     Dates: start: 2003, end: 2017
  16. RENVELA [Concomitant]
     Active Substance: SEVELAMER CARBONATE
     Dates: start: 20180703
  17. CLOBETASOL [Concomitant]
     Active Substance: CLOBETASOL
     Dates: start: 20190212
  18. GLYBURIDE. [Concomitant]
     Active Substance: GLYBURIDE
     Dates: start: 20171116
  19. PIROXICAM. [Concomitant]
     Active Substance: PIROXICAM
     Dates: start: 19990514
  20. AMITRIPTYLIN [Concomitant]
     Active Substance: AMITRIPTYLINE
     Dates: start: 20000302
  21. TUMS [Concomitant]
     Active Substance: CALCIUM CARBONATE
     Dates: start: 2003, end: 2017
  22. ROLAIDS [Concomitant]
     Active Substance: CALCIUM CARBONATE\MAGNESIUM HYDROXIDE
     Dates: start: 2003, end: 2017
  23. DETROL [Concomitant]
     Active Substance: TOLTERODINE TARTRATE
     Dates: start: 20171221
  24. PAROXETINE. [Concomitant]
     Active Substance: PAROXETINE
     Dates: start: 20080222
  25. CITALOPRAM [Concomitant]
     Active Substance: CITALOPRAM HYDROBROMIDE
     Dates: start: 20100802
  26. PREDNISONE. [Concomitant]
     Active Substance: PREDNISONE
     Dates: start: 20120919
  27. CLINDAMYCIN. [Concomitant]
     Active Substance: CLINDAMYCIN
     Dates: start: 20130605
  28. CYCLOSPORINE. [Concomitant]
     Active Substance: CYCLOSPORINE
     Dates: start: 20170312
  29. PRILOSEC [Suspect]
     Active Substance: OMEPRAZOLE MAGNESIUM
     Indication: GASTROOESOPHAGEAL REFLUX DISEASE
     Dosage: GENERIC
     Route: 065
     Dates: start: 20120919, end: 20170925
  30. ONDASETRON [Concomitant]
     Active Substance: ONDANSETRON
     Dates: start: 20171205
  31. EFFEXOR [Concomitant]
     Active Substance: VENLAFAXINE HYDROCHLORIDE
     Dates: start: 20080623
  32. METOLAZONE. [Concomitant]
     Active Substance: METOLAZONE
     Dates: start: 20120921
  33. PRILOSEC OTC [Suspect]
     Active Substance: OMEPRAZOLE MAGNESIUM
     Indication: GASTROOESOPHAGEAL REFLUX DISEASE
     Route: 048
     Dates: start: 20030620, end: 20171231
  34. PREVACID [Suspect]
     Active Substance: LANSOPRAZOLE
     Indication: GASTROOESOPHAGEAL REFLUX DISEASE
     Route: 065
     Dates: start: 20030520, end: 20030714
  35. SIMVASTATIN. [Concomitant]
     Active Substance: SIMVASTATIN
     Indication: BLOOD CHOLESTEROL
     Dates: start: 20061020, end: 2017
  36. AZITHROMYCIN ANHYDROUS. [Concomitant]
     Active Substance: AZITHROMYCIN ANHYDROUS
     Indication: ANTIBIOTIC THERAPY
     Dates: start: 20180427
  37. ZANTAC [Concomitant]
     Active Substance: RANITIDINE HYDROCHLORIDE
     Dates: start: 2003, end: 2017
  38. SODIUM BICAR [Concomitant]
     Dates: start: 20171212
  39. PRILOSEC [Suspect]
     Active Substance: OMEPRAZOLE MAGNESIUM
     Indication: GASTROOESOPHAGEAL REFLUX DISEASE
     Dosage: GENERIC
     Route: 048
     Dates: start: 20120919
  40. LISINOPRIL. [Concomitant]
     Active Substance: LISINOPRIL
     Indication: HYPERTENSION
     Dates: start: 20110304, end: 20110525
  41. VITAMIN D3 [Concomitant]
     Active Substance: CHOLECALCIFEROL
     Indication: SUPPLEMENTATION THERAPY
     Dates: start: 20101013, end: 20171201
  42. CALC ACETATE [Concomitant]
     Active Substance: CALCIUM ACETATE
     Dates: start: 20171205
  43. MIDODRINE [Concomitant]
     Active Substance: MIDODRINE
     Dates: start: 20180312
  44. WARFARIN SODIUM. [Concomitant]
     Active Substance: WARFARIN SODIUM
     Dates: start: 20120918
  45. AMLODIPINE BESYLATE. [Concomitant]
     Active Substance: AMLODIPINE BESYLATE
     Dates: start: 20170516
  46. PRILOSEC [Suspect]
     Active Substance: OMEPRAZOLE MAGNESIUM
     Indication: GASTROOESOPHAGEAL REFLUX DISEASE
     Route: 048
  47. ASPIRIN. [Concomitant]
     Active Substance: ASPIRIN
     Indication: PAIN
     Dates: start: 20111003, end: 20190806
  48. TYLENOL [Concomitant]
     Active Substance: ACETAMINOPHEN
     Indication: HEADACHE
     Dates: start: 2005
  49. CHERATUSSIN [Concomitant]
     Active Substance: AMMONIUM CHLORIDE\DEXTROMETHORPHAN\SODIUM CITRATE
     Dates: start: 20180427
  50. ELIQUIS [Concomitant]
     Active Substance: APIXABAN
     Dates: start: 20180401
  51. MELOXICAM. [Concomitant]
     Active Substance: MELOXICAM
     Dates: start: 20090527
  52. FLUTICASONE. [Concomitant]
     Active Substance: FLUTICASONE
     Dates: start: 20111017
  53. PREVACID 24 HR [Suspect]
     Active Substance: LANSOPRAZOLE
     Indication: GASTROOESOPHAGEAL REFLUX DISEASE
     Route: 065
     Dates: start: 20090518, end: 20171231
  54. PRAVASTATIN. [Concomitant]
     Active Substance: PRAVASTATIN
     Indication: BLOOD CHOLESTEROL
     Dates: start: 20181114

REACTIONS (5)
  - Chronic kidney disease [Not Recovered/Not Resolved]
  - End stage renal disease [Not Recovered/Not Resolved]
  - Acute kidney injury [Not Recovered/Not Resolved]
  - Renal failure [Unknown]
  - Hyperparathyroidism secondary [Unknown]

NARRATIVE: CASE EVENT DATE: 20130205
